FAERS Safety Report 7988265-0 (Version None)
Quarter: 2011Q4

REPORT INFORMATION
  Report Type: 
  Country: None (occurrence: None)
  Receive Date: 20111216
  Receipt Date: 20111025
  Transmission Date: 20120403
  Serious: No
  Sender: FDA-Public Use
  Company Number: US-ABBOTT-11P-163-0865969-00

PATIENT
  Sex: Female

DRUGS (4)
  1. PROMETRIUM [Interacting]
     Indication: PREVENTION OF ENDOMETRIAL HYPERPLASIA
  2. DIVIGEL [Interacting]
     Indication: HOT FLUSH
  3. PROMETRIUM [Suspect]
     Indication: HORMONE REPLACEMENT THERAPY
     Dosage: 100 MG DAILY FOR 14 DAYS EVERY MONTH
     Dates: start: 20110701
  4. DIVIGEL [Interacting]
     Indication: HORMONE REPLACEMENT THERAPY
     Route: 061
     Dates: start: 20110701

REACTIONS (2)
  - HOT FLUSH [None]
  - DRUG INTERACTION [None]
